FAERS Safety Report 5916893-2 (Version None)
Quarter: 2008Q4

REPORT INFORMATION
  Report Type: 
  Country: None (occurrence: None)
  Receive Date: 20081013
  Receipt Date: 20080930
  Transmission Date: 20090506
  Serious: Yes (Death)
  Sender: FDA-Public Use
  Company Number: JP-ABBOTT-08P-087-0481028-00

PATIENT
  Age: 84 Year
  Sex: Male

DRUGS (2)
  1. LEUPROLIDE ACETATE [Suspect]
     Indication: PROSTATE CANCER STAGE II
     Route: 058
     Dates: start: 20061024, end: 20070703
  2. BICALUTAMIDE [Concomitant]
     Indication: PROSTATE CANCER STAGE II
     Route: 048
     Dates: start: 20060208, end: 20070905

REACTIONS (1)
  - MYOCARDIAL INFARCTION [None]
